FAERS Safety Report 16921041 (Version 1)
Quarter: 2019Q4

REPORT INFORMATION
  Report Type: Spontaneous
  Country: US (occurrence: US)
  Receive Date: 20191015
  Receipt Date: 20191015
  Transmission Date: 20200122
  Serious: Yes (Other)
  Sender: FDA-Public Use
  Company Number: US-AMGEN-USASP2019163319

PATIENT
  Age: 59 Year
  Sex: Female

DRUGS (1)
  1. PROLIA [Suspect]
     Active Substance: DENOSUMAB
     Indication: OSTEOPOROSIS POSTMENOPAUSAL
     Dosage: UNK
     Route: 065
     Dates: start: 20120612

REACTIONS (16)
  - Multiple fractures [Unknown]
  - Diaphragmatic paralysis [Unknown]
  - Wrong technique in product usage process [Unknown]
  - Bone disorder [Unknown]
  - Surgical fixation of rib fracture [Unknown]
  - Rib fracture [Unknown]
  - Bone graft [Unknown]
  - Tooth extraction [Unknown]
  - Loss of consciousness [Unknown]
  - Spinal deformity [Unknown]
  - Tooth loss [Unknown]
  - Fracture delayed union [Unknown]
  - Spinal pain [Unknown]
  - Clavicle fracture [Unknown]
  - Osteoporosis [Unknown]
  - Spinal operation [Unknown]

NARRATIVE: CASE EVENT DATE: 20120612
